FAERS Safety Report 10651724 (Version 1)
Quarter: 2014Q4

REPORT INFORMATION
  Report Type: Spontaneous
  Country: US (occurrence: None)
  Receive Date: 20141212
  Receipt Date: 20141212
  Transmission Date: 20150529
  Serious: Yes (Hospitalization, Disabling)
  Sender: FDA-Public Use
  Company Number: None

PATIENT
  Age: 70 Year
  Sex: Female
  Weight: 64 kg

DRUGS (20)
  1. BRINZOLAMIDE/BRIMONID TART (SIMBRINZA OPHT) [Concomitant]
  2. SOFOSBUVIR [Suspect]
     Active Substance: SOFOSBUVIR
     Indication: HEPATITIS C
     Route: 048
  3. LISINOPRIL-HYDROCHLOROTHIAZIDE [Concomitant]
     Active Substance: HYDROCHLOROTHIAZIDE\LISINOPRIL
  4. CLONIDINE (CATAPRES) [Concomitant]
  5. PRINIZIDE [Concomitant]
  6. SIMEPREVIR [Suspect]
     Active Substance: SIMEPREVIR
     Indication: HEPATITIS C
     Route: 048
  7. LATANOPROST (XALATAN) [Concomitant]
  8. SYNTHROID [Concomitant]
     Active Substance: LEVOTHYROXINE SODIUM
  9. FLAGYL [Concomitant]
     Active Substance: METRONIDAZOLE\METRONIDAZOLE HYDROCHLORIDE
  10. GLYBURIDE-METFORMIN [Concomitant]
  11. PROPRANOLOL (INDERAL) [Concomitant]
  12. SOFOSBUVIR [Concomitant]
     Active Substance: SOFOSBUVIR
  13. ATORVASTATIN 40MG WATSON [Suspect]
     Active Substance: ATORVASTATIN
     Indication: BLOOD CHOLESTEROL
     Route: 048
  14. GLUCOVANCE [Concomitant]
     Active Substance: GLYBURIDE\METFORMIN HYDROCHLORIDE
  15. LACTULOSE. [Concomitant]
     Active Substance: LACTULOSE
  16. OMEPRAZOLE (PRILOSEC) [Concomitant]
  17. POTASSIUM CHLORIDE (MICRO-K) [Concomitant]
  18. ALLOPURINOL (ZYLOPRIM) [Concomitant]
  19. LIPITOR [Concomitant]
     Active Substance: ATORVASTATIN CALCIUM
  20. SIMEPREVIR [Concomitant]
     Active Substance: SIMEPREVIR

REACTIONS (5)
  - Asthenia [None]
  - Acute kidney injury [None]
  - Blood creatine phosphokinase increased [None]
  - Encephalopathy [None]
  - Myopathy [None]

NARRATIVE: CASE EVENT DATE: 20141104
